FAERS Safety Report 16013748 (Version 1)
Quarter: 2019Q1

REPORT INFORMATION
  Report Type: Report from Study
  Country: US (occurrence: US)
  Receive Date: 20190227
  Receipt Date: 20190227
  Transmission Date: 20190418
  Serious: Yes (Hospitalization)
  Sender: FDA-Public Use
  Company Number: US-JNJFOC-20190233116

PATIENT
  Sex: Female

DRUGS (12)
  1. LYRICA [Concomitant]
     Active Substance: PREGABALIN
  2. ALLOPURINOL. [Concomitant]
     Active Substance: ALLOPURINOL
  3. HYDROCHLOROTHIAZIDE. [Concomitant]
     Active Substance: HYDROCHLOROTHIAZIDE
  4. IMBRUVICA [Suspect]
     Active Substance: IBRUTINIB
     Indication: CHRONIC LYMPHOCYTIC LEUKAEMIA
     Route: 048
     Dates: start: 20180503, end: 20180822
  5. CENTRUM [Concomitant]
     Active Substance: VITAMINS
  6. SINGULAIR [Concomitant]
     Active Substance: MONTELUKAST SODIUM
  7. IMBRUVICA [Suspect]
     Active Substance: IBRUTINIB
     Indication: CHRONIC LYMPHOCYTIC LEUKAEMIA
     Route: 048
     Dates: start: 20180823
  8. ELIQUIS [Concomitant]
     Active Substance: APIXABAN
  9. METOPROLOL. [Concomitant]
     Active Substance: METOPROLOL
  10. CELEBREX [Concomitant]
     Active Substance: CELECOXIB
  11. IMBRUVICA [Suspect]
     Active Substance: IBRUTINIB
     Indication: CHRONIC LYMPHOCYTIC LEUKAEMIA
     Route: 048
     Dates: start: 20140825, end: 20180502
  12. CALCIUM [Concomitant]
     Active Substance: CALCIUM

REACTIONS (3)
  - Confusional state [Not Recovered/Not Resolved]
  - Disorientation [Not Recovered/Not Resolved]
  - Influenza [Not Recovered/Not Resolved]
